FAERS Safety Report 7627713-2 (Version None)
Quarter: 2011Q3

REPORT INFORMATION
  Report Type: 
  Country: None (occurrence: None)
  Receive Date: 20110721
  Receipt Date: 20110707
  Transmission Date: 20111222
  Serious: Yes (Death)
  Sender: FDA-Public Use
  Company Number: US-PFIZER INC-2010000815

PATIENT
  Age: 63 Year
  Sex: Male

DRUGS (12)
  1. GABAPENTIN [Suspect]
     Dosage: UNK
     Route: 048
     Dates: start: 20080101, end: 20080101
  2. AMITRIPTYLINE HCL [Suspect]
     Dosage: UNK
     Route: 048
     Dates: start: 20080101, end: 20080101
  3. CLONAZEPAM [Suspect]
     Dosage: UNK
     Route: 048
     Dates: start: 20080101, end: 20080101
  4. VENLAFAXINE HCL [Suspect]
     Dosage: UNK
     Route: 048
     Dates: start: 20080101, end: 20080101
  5. MIRTAZAPINE [Suspect]
     Dosage: UNK
     Route: 048
     Dates: start: 20080101, end: 20080101
  6. TRAZODONE HCL [Suspect]
     Dosage: UNK
     Route: 048
     Dates: start: 20080101, end: 20080101
  7. PRAZOSIN HCL [Suspect]
     Dosage: UNK
     Route: 048
     Dates: start: 20080101, end: 20080101
  8. OXYCODONE HYDROCHLORIDE [Suspect]
     Dosage: UNK
     Route: 048
     Dates: start: 20080101, end: 20080101
  9. PRAVACHOL [Suspect]
     Dosage: UNK
     Route: 048
     Dates: start: 20080101, end: 20080101
  10. PROMETHAZINE HYDROCHLORIDE [Suspect]
     Dosage: UNK
     Route: 048
     Dates: start: 20080101, end: 20080101
  11. NIACIN [Suspect]
     Dosage: UNK
     Route: 048
     Dates: start: 20080101, end: 20080101
  12. ATENOLOL [Suspect]
     Dosage: UNK
     Route: 048
     Dates: start: 20080101, end: 20080101

REACTIONS (3)
  - COMPLETED SUICIDE [None]
  - RESPIRATORY ARREST [None]
  - CARDIAC ARREST [None]
